FAERS Safety Report 16817414 (Version 2)
Quarter: 2019Q3

REPORT INFORMATION
  Report Type: Spontaneous
  Country: US (occurrence: US)
  Receive Date: 20190917
  Receipt Date: 20190925
  Transmission Date: 20191005
  Serious: No
  Sender: FDA-Public Use
  Company Number: US-PFIZER INC-2019395982

PATIENT
  Age: 82 Year
  Sex: Female
  Weight: 45 kg

DRUGS (1)
  1. IBRANCE [Suspect]
     Active Substance: PALBOCICLIB
     Indication: BREAST CANCER FEMALE
     Dosage: 75 MG, DAILY
     Route: 048

REACTIONS (2)
  - Alopecia [Unknown]
  - Dry skin [Unknown]

NARRATIVE: CASE EVENT DATE: 20190910
